FAERS Safety Report 8225243-0 (Version None)
Quarter: 2012Q1

REPORT INFORMATION
  Report Type: 
  Country: None (occurrence: None)
  Receive Date: 20120321
  Receipt Date: 20120308
  Transmission Date: 20120608
  Serious: Yes (Other)
  Sender: FDA-Public Use
  Company Number: TR-ACTELION-A-CH2012-62316

PATIENT
  Sex: Female
  Weight: 60 kg

DRUGS (3)
  1. TRACLEER [Suspect]
     Indication: RESTRICTIVE CARDIOMYOPATHY
     Dosage: 62.5 MG, BID
     Route: 048
     Dates: start: 20120113
  2. SILDENAFIL [Concomitant]
     Dosage: UNK
     Dates: start: 20120113
  3. TRACLEER [Suspect]
     Dosage: 125 MG, BID
     Route: 048
     Dates: end: 20120229

REACTIONS (6)
  - TACHYPNOEA [None]
  - EXERCISE TOLERANCE DECREASED [None]
  - PALPITATIONS [None]
  - DYSPNOEA [None]
  - PULMONARY CONGESTION [None]
  - FLANK PAIN [None]
